FAERS Safety Report 8312116-8 (Version None)
Quarter: 2012Q2

REPORT INFORMATION
  Report Type: 
  Country: None (occurrence: None)
  Receive Date: 20120425
  Receipt Date: 20110808
  Transmission Date: 20120825
  Serious: Yes (Other)
  Sender: FDA-Public Use
  Company Number: US-TEVA-US016922

PATIENT
  Sex: Female
  Weight: 61 kg

DRUGS (3)
  1. PROVIGIL [Suspect]
     Indication: APATHY
     Dosage: 200 MILLIGRAM;
     Route: 048
     Dates: start: 20051118, end: 20051230
  2. ZOLOFT [Concomitant]
     Indication: DEPRESSION
     Dosage: 200 MILLIGRAM;
     Route: 065
  3. LUNESTA [Concomitant]
     Indication: INSOMNIA
     Dosage: 3 MILLIGRAM;
     Route: 065
     Dates: start: 20050902

REACTIONS (1)
  - DYSKINESIA [None]
